FAERS Safety Report 16798535 (Version 1)
Quarter: 2019Q3

REPORT INFORMATION
  Report Type: Spontaneous
  Country: US (occurrence: US)
  Receive Date: 20190912
  Receipt Date: 20190912
  Transmission Date: 20191005
  Serious: No
  Sender: FDA-Public Use
  Company Number: US-US WORLDMEDS, LLC-USW201906-001218

PATIENT
  Age: 58 Year
  Sex: Female

DRUGS (2)
  1. LUCEMYRA [Suspect]
     Active Substance: LOFEXIDINE
     Dates: start: 20190620
  2. MORPHINE [Concomitant]
     Active Substance: MORPHINE
     Indication: EAR PAIN

REACTIONS (3)
  - Dry mouth [Not Recovered/Not Resolved]
  - Constipation [Recovering/Resolving]
  - Somnolence [Recovered/Resolved]

NARRATIVE: CASE EVENT DATE: 20190620
